FAERS Safety Report 8104985-1 (Version None)
Quarter: 2012Q1

REPORT INFORMATION
  Report Type: 
  Country: None (occurrence: None)
  Receive Date: 20120201
  Receipt Date: 20120127
  Transmission Date: 20120608
  Serious: Yes (Hospitalization, Disabling)
  Sender: FDA-Public Use
  Company Number: AT-GLAXOSMITHKLINE-B0717164A

PATIENT
  Age: 18 Year
  Sex: Male
  Weight: 66 kg

DRUGS (1)
  1. ZOVIRAX [Suspect]
     Indication: PROPHYLAXIS
     Dosage: 800MG THREE TIMES PER DAY
     Route: 065
     Dates: start: 20100601, end: 20110201

REACTIONS (6)
  - ENCEPHALITIS [None]
  - CIRCULATORY COLLAPSE [None]
  - EPILEPSY [None]
  - MUSCLE TWITCHING [None]
  - HERPES ZOSTER [None]
  - TREMOR [None]
